FAERS Safety Report 5668708-8 (Version None)
Quarter: 2008Q1

REPORT INFORMATION
  Report Type: 
  Country: None (occurrence: None)
  Receive Date: 20080317
  Receipt Date: 20080305
  Transmission Date: 20080703
  Serious: Yes (Other)
  Sender: FDA-Public Use
  Company Number: GB-RANBAXY-2008RR-13527

PATIENT

DRUGS (17)
  1. ASPIRIN [Suspect]
     Dosage: 75 MG, UNK
     Route: 065
  2. ENOXAPARIN SODIUM [Suspect]
     Dosage: 40 MG, BID
     Route: 065
  3. FUROSEMIDE TABLETS BP 40MG [Suspect]
     Dosage: 80 MG, BID
     Route: 065
  4. PREDNISOLONE RPG 5MG COMPRIME EFFERVESCENT [Suspect]
     Indication: ASTHMA
     Route: 065
  5. SALBUTAMOL TABLETS BP 2MG [Suspect]
     Indication: ASTHMA
     Route: 065
  6. SALBUTAMOL TABLETS BP 2MG [Suspect]
     Route: 055
  7. ETOMIDATE [Concomitant]
     Dosage: 20 MG, UNK
  8. SUXAMETHONIUM [Concomitant]
     Dosage: 100 MG, UNK
  9. FENTANYL [Concomitant]
     Dosage: 500 UG, UNK
  10. OXYTOCIN [Concomitant]
     Dosage: 5 UNITS, UNK
     Route: 042
  11. OXYTOCIN [Concomitant]
     Dosage: 15 UNITS, UNK
     Route: 042
  12. MORPHINE [Concomitant]
     Dosage: 5 MG, UNK
     Route: 042
  13. ATRACURIUM BESYLATE [Concomitant]
     Dosage: 20 MG, UNK
     Route: 042
  14. ISOFLURANE [Concomitant]
  15. EPHEDRINE SUL CAP [Concomitant]
     Dosage: 21 MG, UNK
  16. METARAMINOL [Concomitant]
     Dosage: 1 MG, UNK
  17. DOPAMINE HCL [Concomitant]

REACTIONS (18)
  - AKINESIA [None]
  - ANXIETY [None]
  - CARDIAC DISORDER [None]
  - CARDIOMEGALY [None]
  - CHEST PAIN [None]
  - COUGH [None]
  - DRUG EXPOSURE DURING PREGNANCY [None]
  - DYSKINESIA [None]
  - EJECTION FRACTION DECREASED [None]
  - EMOTIONAL DISTRESS [None]
  - MITRAL VALVE INCOMPETENCE [None]
  - OEDEMA PERIPHERAL [None]
  - PERIPARTUM CARDIOMYOPATHY [None]
  - SINUS RHYTHM [None]
  - TACHYCARDIA [None]
  - THROMBOSIS [None]
  - TRICUSPID VALVE INCOMPETENCE [None]
  - VENTRICULAR DYSFUNCTION [None]
